FAERS Safety Report 20950761 (Version 4)
Quarter: 2022Q3

REPORT INFORMATION
  Report Type: Report from Study
  Country: US (occurrence: US)
  Receive Date: 20220613
  Receipt Date: 20220909
  Transmission Date: 20221026
  Serious: No
  Sender: FDA-Public Use
  Company Number: US-SAGE-2022SAGE000049

PATIENT
  Age: 30 Year
  Sex: Female

DRUGS (8)
  1. ZULRESSO [Suspect]
     Active Substance: BREXANOLONE
     Indication: Perinatal depression
     Dosage: 30 MCG/KG/HR
     Route: 042
     Dates: start: 20211012, end: 20211012
  2. ZULRESSO [Suspect]
     Active Substance: BREXANOLONE
     Dosage: 60 MCG/KG/HR
     Route: 042
     Dates: start: 20211012, end: 20211013
  3. ZULRESSO [Suspect]
     Active Substance: BREXANOLONE
     Dosage: 60 MCG/KG/HR, NEW BAG
     Route: 042
     Dates: start: 20211013, end: 20211013
  4. ZULRESSO [Suspect]
     Active Substance: BREXANOLONE
     Dosage: 90 MCG/KG/HR, NEW BAG CHANGED AT 13-OCT, 14:44 HOURS
     Route: 042
     Dates: start: 20211013, end: 20211014
  5. ZULRESSO [Suspect]
     Active Substance: BREXANOLONE
     Dosage: 90 MCG/KG/HR, NEW BAG
     Route: 042
     Dates: start: 20211014, end: 20211014
  6. ZULRESSO [Suspect]
     Active Substance: BREXANOLONE
     Dosage: 90 MCG/KG/HR, NEW BAG
     Route: 042
     Dates: start: 20211014, end: 20211014
  7. ZULRESSO [Suspect]
     Active Substance: BREXANOLONE
     Dosage: 60 MCG/KG/HR
     Route: 042
     Dates: start: 20211014, end: 20211014
  8. ZULRESSO [Suspect]
     Active Substance: BREXANOLONE
     Dosage: 30 MCG/KG/HR
     Route: 042
     Dates: start: 20211014, end: 20211015

REACTIONS (1)
  - Drug monitoring procedure incorrectly performed [Unknown]
